FAERS Safety Report 25264293 (Version 1)
Quarter: 2025Q2

REPORT INFORMATION
  Report Type: Spontaneous
  Country: US (occurrence: US)
  Receive Date: 20250502
  Receipt Date: 20250502
  Transmission Date: 20250717
  Serious: No
  Sender: Karo Pharma
  Company Number: US-Karo Pharma-2176056

PATIENT
  Age: 74 Year
  Weight: 99.79 kg

DRUGS (13)
  1. TERBINAFINE [Suspect]
     Active Substance: TERBINAFINE
     Indication: Psoriasis
  2. CLOBETASOL [Suspect]
     Active Substance: CLOBETASOL
  3. CALCIPOTRIENE [Suspect]
     Active Substance: CALCIPOTRIENE
  4. BETAMETHASONE [Suspect]
     Active Substance: BETAMETHASONE
  5. FLECAINIDE [Suspect]
     Active Substance: FLECAINIDE
  6. FLUOCINOLONE [Suspect]
     Active Substance: FLUOCINOLONE
  7. TERBINAFINE [Suspect]
     Active Substance: TERBINAFINE
  8. AMLODIPINE [Suspect]
     Active Substance: AMLODIPINE BESYLATE
  9. CLOTRIMAZOLE [Suspect]
     Active Substance: CLOTRIMAZOLE
  10. METOPROLOL [Suspect]
     Active Substance: METOPROLOL
  11. APIXABAN [Suspect]
     Active Substance: APIXABAN
  12. FUROSEMIDE [Suspect]
     Active Substance: FUROSEMIDE
  13. KETOCONAZOLE [Suspect]
     Active Substance: KETOCONAZOLE

REACTIONS (6)
  - Drug effect less than expected [Unknown]
  - Psoriasis [Unknown]
  - Product use in unapproved indication [Unknown]
  - Rash [Unknown]
  - Skin exfoliation [Unknown]
  - Pruritus [Unknown]
